FAERS Safety Report 25155955 (Version 2)
Quarter: 2025Q2

REPORT INFORMATION
  Report Type: Spontaneous
  Country: US (occurrence: US)
  Receive Date: 20250403
  Receipt Date: 20250529
  Transmission Date: 20250717
  Serious: Yes (Death)
  Sender: SCPHARMACEUTICALS
  Company Number: US-SCPHARMACEUTICALS-2025-SCPH-US000154

PATIENT

DRUGS (1)
  1. FUROSCIX [Suspect]
     Active Substance: FUROSEMIDE
     Indication: Product used for unknown indication
     Route: 058
     Dates: start: 20250318, end: 20250318

REACTIONS (3)
  - Death [Fatal]
  - Chills [Unknown]
  - Back pain [Unknown]

NARRATIVE: CASE EVENT DATE: 20250318
